FAERS Safety Report 10606552 (Version 1)
Quarter: 2014Q4

REPORT INFORMATION
  Report Type: Report from Study
  Country: AR (occurrence: AR)
  Receive Date: 20141125
  Receipt Date: 20141125
  Transmission Date: 20150529
  Serious: Yes (Other)
  Sender: FDA-Public Use
  Company Number: PHHY2014AR153669

PATIENT
  Sex: Male

DRUGS (1)
  1. TOBI [Suspect]
     Active Substance: TOBRAMYCIN
     Indication: BRONCHIAL SECRETION RETENTION
     Dosage: UNK, QD
     Route: 065

REACTIONS (4)
  - Cardiac disorder [Unknown]
  - Terminal state [Unknown]
  - Total lung capacity decreased [Unknown]
  - Fatigue [Unknown]
